FAERS Safety Report 8549234-5 (Version None)
Quarter: 2012Q3

REPORT INFORMATION
  Report Type: 
  Country: None (occurrence: None)
  Receive Date: 20120730
  Receipt Date: 20120725
  Transmission Date: 20120928
  Serious: Yes (Disabling, Other)
  Sender: FDA-Public Use
  Company Number: PHEH2012US014682

PATIENT
  Sex: Female
  Weight: 50 kg

DRUGS (1)
  1. RECLAST [Suspect]
     Indication: OSTEOPOROSIS
     Dosage: 5 MG, UNK
     Route: 042
     Dates: start: 20111102

REACTIONS (5)
  - COMPRESSION FRACTURE [None]
  - JOINT DISLOCATION [None]
  - PAIN [None]
  - PELVIC FRACTURE [None]
  - ACETABULUM FRACTURE [None]
